FAERS Safety Report 9727182 (Version 1)
Quarter: 2013Q4

REPORT INFORMATION
  Report Type: Spontaneous
  Country: US (occurrence: US)
  Receive Date: 20131203
  Receipt Date: 20131203
  Transmission Date: 20140711
  Serious: No
  Sender: FDA-Public Use
  Company Number: US-BRISTOL-MYERS SQUIBB COMPANY-19502533

PATIENT
  Age: 76 Year
  Sex: Female

DRUGS (2)
  1. KOMBIGLYZE XR [Suspect]
     Dosage: 1DF=5/500MG
     Route: 048
  2. GLIPIZIDE [Concomitant]

REACTIONS (1)
  - Dizziness [Recovered/Resolved]
